FAERS Safety Report 16554894 (Version 1)
Quarter: 2019Q3

REPORT INFORMATION
  Report Type: Spontaneous
  Country: CA (occurrence: CA)
  Receive Date: 20190710
  Receipt Date: 20190710
  Transmission Date: 20191004
  Serious: Yes (Death)
  Sender: FDA-Public Use
  Company Number: CA-TEVA-2019-CA-1074457

PATIENT
  Age: 93 Year
  Sex: Female
  Weight: 56 kg

DRUGS (12)
  1. METHIMAZOLE. [Concomitant]
     Active Substance: METHIMAZOLE
  2. VITAMIN B12 [Concomitant]
     Active Substance: CYANOCOBALAMIN
  3. DILTIAZEM. [Concomitant]
     Active Substance: DILTIAZEM
  4. DOCUSATE [Concomitant]
     Active Substance: DOCUSATE
  5. FUROSEMIDE. [Concomitant]
     Active Substance: FUROSEMIDE
  6. METFORMIN [Suspect]
     Active Substance: METFORMIN HYDROCHLORIDE
     Indication: TYPE 2 DIABETES MELLITUS
     Dosage: 2550 MILLIGRAM DAILY;
     Route: 048
  7. DIGOXIN. [Concomitant]
     Active Substance: DIGOXIN
  8. ELIQUIS [Concomitant]
     Active Substance: APIXABAN
  9. EZETIMIBE. [Concomitant]
     Active Substance: EZETIMIBE
  10. FERROUS SULFATE. [Concomitant]
     Active Substance: FERROUS SULFATE
  11. METOPROLOL. [Concomitant]
     Active Substance: METOPROLOL
  12. ATORVASTATIN [Concomitant]
     Active Substance: ATORVASTATIN

REACTIONS (4)
  - Acute pulmonary oedema [Fatal]
  - Lactic acidosis [Fatal]
  - Acute kidney injury [Fatal]
  - Cardiorenal syndrome [Fatal]
